FAERS Safety Report 8475969-9 (Version None)
Quarter: 2012Q2

REPORT INFORMATION
  Report Type: 
  Country: None (occurrence: None)
  Receive Date: 20120628
  Receipt Date: 20120621
  Transmission Date: 20120825
  Serious: Yes (Hospitalization)
  Sender: FDA-Public Use
  Company Number: DE-ABBOTT-12P-062-0948557-00

PATIENT
  Age: 78 Year
  Sex: Male
  Weight: 88 kg

DRUGS (10)
  1. ZEMPLAR [Suspect]
     Indication: HYPOPARATHYROIDISM SECONDARY
     Dates: start: 20100810
  2. FUROSEMIDE [Suspect]
     Indication: PRODUCT USED FOR UNKNOWN INDICATION
  3. ENALAPRIL MALEATE [Suspect]
  4. MARCUMAR [Suspect]
     Indication: PRODUCT USED FOR UNKNOWN INDICATION
  5. FUROSEMIDE [Suspect]
  6. FUROSEMIDE [Suspect]
     Dosage: CHANGE FROM 40MG TO  80MG DAILY
  7. ENALAPRIL MALEATE [Suspect]
     Indication: PRODUCT USED FOR UNKNOWN INDICATION
  8. DEKRISTOL [Concomitant]
     Indication: PRODUCT USED FOR UNKNOWN INDICATION
  9. ASPIRIN [Concomitant]
     Indication: PRODUCT USED FOR UNKNOWN INDICATION
  10. ZEMPLAR [Suspect]

REACTIONS (3)
  - HAEMORRHAGE [None]
  - ARTERIOVENOUS SHUNT OPERATION [None]
  - BLOOD CREATINE INCREASED [None]
